FAERS Safety Report 5298397-6 (Version None)
Quarter: 2007Q2

REPORT INFORMATION
  Report Type: 
  Country: None (occurrence: None)
  Receive Date: 20070416
  Receipt Date: 20070404
  Transmission Date: 20071010
  Serious: Yes (Other)
  Sender: FDA-Public Use
  Company Number: US-PFIZER INC-2007027735

PATIENT
  Age: 69 Year
  Sex: Male
  Weight: 98 kg

DRUGS (9)
  1. VFEND [Suspect]
     Indication: ASPERGILLOSIS
     Route: 042
  2. DARVOCET [Suspect]
     Dates: start: 20070101, end: 20070101
  3. LOTREL [Concomitant]
  4. HYDROCHLOROTHIAZIDE [Concomitant]
  5. VITAMINS [Concomitant]
  6. CITRACAL [Concomitant]
  7. DILAUDID [Concomitant]
  8. PEPCID [Concomitant]
  9. COLACE [Concomitant]

REACTIONS (4)
  - CHROMATURIA [None]
  - ELECTROLYTE IMBALANCE [None]
  - FATIGUE [None]
  - HEPATIC ENZYME INCREASED [None]
